FAERS Safety Report 13895073 (Version 1)
Quarter: 2017Q3

REPORT INFORMATION
  Report Type: Spontaneous
  Country: SD (occurrence: SD)
  Receive Date: 20170817
  Receipt Date: 20170817
  Transmission Date: 20171127
  Serious: Yes (Disabling, Other)
  Sender: FDA-Public Use
  Company Number: None

PATIENT
  Sex: Male
  Weight: 55 kg

DRUGS (5)
  1. PRITIS [Concomitant]
  2. SINVASTATINA [Concomitant]
     Active Substance: SIMVASTATIN
  3. OMEOPRAZOLE [Concomitant]
     Active Substance: OMEPRAZOLE
  4. TRADJENTA [Suspect]
     Active Substance: LINAGLIPTIN
  5. ANTICOAGULANTE [Concomitant]

REACTIONS (1)
  - Pemphigoid [None]

NARRATIVE: CASE EVENT DATE: 20170101
